FAERS Safety Report 16135447 (Version 2)
Quarter: 2019Q2

REPORT INFORMATION
  Report Type: Spontaneous
  Country: BE (occurrence: BE)
  Receive Date: 20190329
  Receipt Date: 20190422
  Transmission Date: 20190711
  Serious: Yes (Other)
  Sender: FDA-Public Use
  Company Number: BE-JNJFOC-20190337019

PATIENT
  Age: 63 Year
  Sex: Male
  Weight: 88 kg

DRUGS (8)
  1. STELARA [Suspect]
     Active Substance: USTEKINUMAB
     Indication: CROHN^S DISEASE
     Route: 058
     Dates: start: 20180508
  2. AMLOR [Concomitant]
     Active Substance: AMLODIPINE BESYLATE
     Route: 048
     Dates: start: 20190110
  3. STELARA [Suspect]
     Active Substance: USTEKINUMAB
     Indication: CROHN^S DISEASE
     Route: 058
     Dates: start: 201812
  4. AERIUS [Concomitant]
     Route: 048
     Dates: start: 20161126
  5. DUOVENT [Concomitant]
     Active Substance: FENOTEROL HYDROBROMIDE
     Route: 048
     Dates: start: 20170222
  6. LYSOMUCIL [Concomitant]
     Active Substance: ACETYLCYSTEINE
     Route: 048
     Dates: start: 20161122
  7. TELMISARTAN. [Concomitant]
     Active Substance: TELMISARTAN
     Route: 048
     Dates: start: 20161201
  8. STELARA [Suspect]
     Active Substance: USTEKINUMAB
     Indication: CROHN^S DISEASE
     Route: 058
     Dates: start: 20190325

REACTIONS (3)
  - Transient ischaemic attack [Recovered/Resolved]
  - Product use issue [Unknown]
  - Off label use [Unknown]

NARRATIVE: CASE EVENT DATE: 20180508
